FAERS Safety Report 4655956-9 (Version None)
Quarter: 2005Q2

REPORT INFORMATION
  Report Type: 
  Country: None (occurrence: None)
  Receive Date: 20050505
  Receipt Date: 20050426
  Transmission Date: 20051028
  Serious: Yes (Hospitalization, Other)
  Sender: FDA-Public Use
  Company Number: 2005066673

PATIENT
  Sex: Female

DRUGS (2)
  1. CELEBREX [Suspect]
     Indication: ILL-DEFINED DISORDER
     Dosage: ORAL
     Route: 048
  2. LYRICA [Suspect]
     Indication: ILL-DEFINED DISORDER
     Dosage: ORAL
     Route: 048

REACTIONS (2)
  - BRAIN OEDEMA [None]
  - NERVOUS SYSTEM DISORDER [None]
